FAERS Safety Report 19236569 (Version 1)
Quarter: 2021Q2

REPORT INFORMATION
  Report Type: Spontaneous
  Country: US (occurrence: US)
  Receive Date: 20210510
  Receipt Date: 20210510
  Transmission Date: 20210717
  Serious: No
  Sender: FDA-Public Use
  Company Number: US-GLAXOSMITHKLINE-USCH2021AMR026013

PATIENT
  Sex: Female

DRUGS (1)
  1. TRANSDERM SCOP [Suspect]
     Active Substance: SCOPOLAMINE
     Indication: HEADACHE
     Dosage: UNK

REACTIONS (3)
  - Product use in unapproved indication [Unknown]
  - Application site dermatitis [Unknown]
  - Therapeutic response unexpected [Unknown]
